FAERS Safety Report 7310013-8 (Version None)
Quarter: 2011Q1

REPORT INFORMATION
  Report Type: 
  Country: None (occurrence: None)
  Receive Date: 20110224
  Receipt Date: 20100914
  Transmission Date: 20110831
  Serious: Yes (Hospitalization)
  Sender: FDA-Public Use
  Company Number: US-BAYER-200938772NA

PATIENT
  Sex: Female
  Weight: 52.273 kg

DRUGS (5)
  1. ZOLOFT [Concomitant]
  2. YAZ [Suspect]
     Indication: PRODUCT USED FOR UNKNOWN INDICATION
  3. VITAMINS NOS [Concomitant]
  4. XANAX [Concomitant]
  5. YASMIN [Suspect]
     Indication: PRODUCT USED FOR UNKNOWN INDICATION
     Dosage: UNK
     Dates: start: 20030101, end: 20040101

REACTIONS (8)
  - HEADACHE [None]
  - DYSARTHRIA [None]
  - NEUROLOGICAL SYMPTOM [None]
  - CEREBROVASCULAR ACCIDENT [None]
  - MOBILITY DECREASED [None]
  - TRANSIENT ISCHAEMIC ATTACK [None]
  - ISCHAEMIC CEREBRAL INFARCTION [None]
  - MIGRAINE [None]
